FAERS Safety Report 8604360 (Version 4)
Quarter: 2012Q4

REPORT INFORMATION
  Report Type: Report from Study
  Country: CL (occurrence: CL)
  Receive Date: 20120608
  Receipt Date: 20120829
  Transmission Date: 20130627
  Serious: Yes (Hospitalization, Other)
  Sender: FDA-Public Use
  Company Number: CL-CELGENEUS-034-C5013-12060441

PATIENT
  Age: 72 Year
  Sex: Male
  Weight: 80.5 kg

DRUGS (10)
  1. CC-5013 [Suspect]
     Indication: CLL
     Dosage: 5 Milligram
     Route: 048
     Dates: start: 20110816
  2. CC-5013 [Suspect]
     Dosage: 5 Milligram
     Route: 048
     Dates: start: 20110924, end: 20110929
  3. LOSARTAN POTASSIUM [Concomitant]
     Indication: HYPERTENSION ARTERIAL
     Dosage: 50 Milligram
     Route: 048
     Dates: start: 2005
  4. CLONAZEPAM [Concomitant]
     Indication: INSOMNIA
     Dosage: .5 Milligram
     Route: 048
     Dates: start: 2005
  5. TESTOSTERONE UNDECANOATE [Concomitant]
     Indication: DRUG USE FOR UNKNOWN INDICATION
     Dosage: 1000 Milligram
     Route: 030
     Dates: start: 2007
  6. OMEPRAZOLE [Concomitant]
     Indication: GASTROESOPHAGEAL REFLUX
     Dosage: 20 Milligram
     Route: 065
     Dates: start: 201102
  7. ALLOPURINOL [Concomitant]
     Indication: PROPHYLAXIS
     Dosage: 300 Milligram
     Route: 048
     Dates: start: 20110813, end: 20110920
  8. CHLORPHENAMINE [Concomitant]
     Indication: RASH DESQUAMATING
     Route: 048
     Dates: start: 20110914, end: 20111020
  9. CHLORAMBUCIL [Concomitant]
     Indication: DRUG USE FOR UNKNOWN INDICATION
     Route: 065
     Dates: start: 201110
  10. CHLORAMBUCIL [Concomitant]
     Route: 065
     Dates: start: 201204

REACTIONS (1)
  - Metastases to peritoneum [Not Recovered/Not Resolved]
